FAERS Safety Report 10144942 (Version 1)
Quarter: 2014Q2

REPORT INFORMATION
  Report Type: Spontaneous
  Country: US (occurrence: US)
  Receive Date: 20140430
  Receipt Date: 20140430
  Transmission Date: 20141212
  Serious: No
  Sender: FDA-Public Use
  Company Number: US-SA-2014SA042005

PATIENT
  Sex: Female

DRUGS (14)
  1. DEMEROL [Suspect]
     Indication: PRODUCT USED FOR UNKNOWN INDICATION
     Route: 065
  2. SUMATRIPTAN [Concomitant]
     Route: 045
     Dates: start: 20131016
  3. KEPPRA [Concomitant]
     Route: 048
     Dates: start: 20131209
  4. L-LYSINE [Concomitant]
     Route: 048
  5. MAXALT-MLT [Concomitant]
     Dosage: DISINTEGRATING TABLET
     Route: 048
     Dates: start: 20131111
  6. NAPROXEN [Concomitant]
     Route: 048
     Dates: start: 20130710
  7. SKELAXIN [Concomitant]
     Route: 048
     Dates: start: 20120404
  8. SUMATRIPTAN SUCCINATE [Concomitant]
     Route: 048
     Dates: start: 20130710
  9. TOPIRAMATE [Concomitant]
     Route: 048
     Dates: start: 20140224
  10. NAPROXEN [Concomitant]
     Route: 048
     Dates: start: 20120416
  11. VERAPAMIL [Concomitant]
     Route: 048
     Dates: start: 20140106
  12. XANAX [Concomitant]
     Route: 048
  13. ZOFRAN [Concomitant]
     Route: 048
     Dates: start: 20130710
  14. ZOFRAN [Concomitant]
     Route: 048
     Dates: start: 20120904

REACTIONS (2)
  - Drug hypersensitivity [Unknown]
  - Vomiting [Unknown]
